FAERS Safety Report 15611315 (Version 1)
Quarter: 2018Q4

REPORT INFORMATION
  Report Type: Spontaneous
  Country: US (occurrence: US)
  Receive Date: 20181113
  Receipt Date: 20181113
  Transmission Date: 20190205
  Serious: No
  Sender: FDA-Public Use
  Company Number: PHEH2018US048161

PATIENT

DRUGS (1)
  1. DOCETAXEL. [Suspect]
     Active Substance: DOCETAXEL
     Indication: PRODUCT USED FOR UNKNOWN INDICATION
     Route: 065
     Dates: start: 20160414, end: 20160804

REACTIONS (4)
  - Emotional distress [Unknown]
  - Discomfort [Unknown]
  - Alopecia [Not Recovered/Not Resolved]
  - Anxiety [Unknown]
